FAERS Safety Report 7784584-1 (Version None)
Quarter: 2011Q3

REPORT INFORMATION
  Report Type: 
  Country: None (occurrence: None)
  Receive Date: 20110928
  Receipt Date: 20110622
  Transmission Date: 20111222
  Serious: No
  Sender: FDA-Public Use
  Company Number: US-BAYER-2011-079999

PATIENT
  Sex: Male

DRUGS (5)
  1. SLEEP AID [Concomitant]
  2. TRAMADOL [Concomitant]
  3. ALEVE (CAPLET) [Suspect]
     Indication: GENITAL PAIN
  4. MUSCLE RELAXANTS, CENTRALLY ACTING AGENTS [Concomitant]
     Dosage: 2
  5. ALEVE (CAPLET) [Suspect]
     Indication: BACK PAIN
     Dosage: 2
     Route: 048

REACTIONS (1)
  - MEDICATION ERROR [None]
